FAERS Safety Report 8401459-5 (Version None)
Quarter: 2012Q2

REPORT INFORMATION
  Report Type: 
  Country: None (occurrence: None)
  Receive Date: 20120525
  Receipt Date: 20120511
  Transmission Date: 20120825
  Serious: Yes (Hospitalization, Other)
  Sender: FDA-Public Use
  Company Number: 2012MA006114

PATIENT
  Age: 63 Year
  Sex: Female

DRUGS (3)
  1. CARBAMAZEPINE [Suspect]
     Dosage: 2800 MG;X1
  2. QUETIAPINE FUMARATE [Suspect]
     Dosage: 25 MG
  3. CHLORPROTHIXEN (NO PREF. NAME) [Suspect]

REACTIONS (21)
  - SLUGGISHNESS [None]
  - EXTRASYSTOLES [None]
  - CONFUSIONAL STATE [None]
  - DRUG INTERACTION [None]
  - DISORIENTATION [None]
  - SOMNOLENCE [None]
  - HYPOTENSION [None]
  - COMMUNICATION DISORDER [None]
  - MOTOR DYSFUNCTION [None]
  - CARDIAC HYPERTROPHY [None]
  - VENTRICULAR HYPERTROPHY [None]
  - TOXICITY TO VARIOUS AGENTS [None]
  - NODAL RHYTHM [None]
  - ALCOHOL WITHDRAWAL SYNDROME [None]
  - DRUG LEVEL ABOVE THERAPEUTIC [None]
  - GRAND MAL CONVULSION [None]
  - MITRAL VALVE DISEASE [None]
  - SINUS BRADYCARDIA [None]
  - MENTAL DISORDER [None]
  - BLOOD PRESSURE FLUCTUATION [None]
  - ALTERED STATE OF CONSCIOUSNESS [None]
